FAERS Safety Report 13982603 (Version 1)
Quarter: 2017Q3

REPORT INFORMATION
  Report Type: Spontaneous
  Country: US (occurrence: US)
  Receive Date: 20170918
  Receipt Date: 20170918
  Transmission Date: 20171128
  Serious: No
  Sender: FDA-Public Use
  Company Number: US-LEADIANT BIOSCIENCES INC-2016STPI000743

PATIENT
  Age: 12 Year
  Sex: Male

DRUGS (10)
  1. MATULANE [Suspect]
     Active Substance: PROCARBAZINE HYDROCHLORIDE
     Indication: HODGKIN^S DISEASE
     Dosage: 200 MG, QD X 7 DAYS
     Route: 048
     Dates: start: 201608
  2. BLEOMYCIN [Concomitant]
     Active Substance: BLEOMYCIN SULFATE
  3. ETOPOSIDE. [Concomitant]
     Active Substance: ETOPOSIDE
  4. DOXORUBICIN [Concomitant]
     Active Substance: DOXORUBICIN
  5. BIOTENE                            /03475601/ [Concomitant]
  6. CYCLOPHOSPHAMIDE. [Concomitant]
     Active Substance: CYCLOPHOSPHAMIDE
  7. CLOTRIMAZOLE. [Concomitant]
     Active Substance: CLOTRIMAZOLE
  8. VINCRISTINE [Concomitant]
     Active Substance: VINCRISTINE
  9. PREDNISONE. [Concomitant]
     Active Substance: PREDNISONE
  10. BACTRIM [Concomitant]
     Active Substance: SULFAMETHOXAZOLE\TRIMETHOPRIM

REACTIONS (1)
  - Alopecia [None]

NARRATIVE: CASE EVENT DATE: 201609
